FAERS Safety Report 16016095 (Version 2)
Quarter: 2019Q1

REPORT INFORMATION
  Report Type: Spontaneous
  Country: US (occurrence: US)
  Receive Date: 20190228
  Receipt Date: 20190311
  Transmission Date: 20190418
  Serious: Yes (Hospitalization)
  Sender: FDA-Public Use
  Company Number: US-HORIZON-ACT-0040-2019

PATIENT
  Age: 10 Year
  Sex: Male

DRUGS (6)
  1. ACTIMMUNE [Suspect]
     Active Substance: INTERFERON GAMMA-1B
     Indication: CHRONIC GRANULOMATOUS DISEASE
     Dosage: 100 MCG EVERY MONDAY, WEDNESDAY AND FRIDAY
     Dates: start: 20170228
  2. CEPHALEXIN. [Concomitant]
     Active Substance: CEPHALEXIN
  3. ITRACONAZOLE. [Concomitant]
     Active Substance: ITRACONAZOLE
  4. SULFATRIM PD SUS [Concomitant]
  5. MUPIRONCIN [Concomitant]
  6. POLYMYNIX B/SOL TRIMETHP [Concomitant]

REACTIONS (3)
  - Lymphadenopathy [Unknown]
  - Rhinitis [Unknown]
  - Staphylococcal infection [Unknown]

NARRATIVE: CASE EVENT DATE: 20190220
